FAERS Safety Report 4386747-4 (Version None)
Quarter: 2004Q2

REPORT INFORMATION
  Report Type: 
  Country: None (occurrence: None)
  Receive Date: 20040629
  Receipt Date: 20040621
  Transmission Date: 20050107
  Serious: Yes (Life-Threatening, Hospitalization)
  Sender: FDA-Public Use
  Company Number: DE-MERCK-0406DEU00128

PATIENT
  Age: 53 Year
  Sex: Male
  Weight: 97 kg

DRUGS (4)
  1. CARVEDILOL [Concomitant]
     Indication: CARDIAC FAILURE
     Route: 065
  2. RAMIPRIL [Concomitant]
     Indication: CARDIAC FAILURE
     Route: 065
  3. ZOCOR [Suspect]
     Indication: HYPERLIPIDAEMIA
     Route: 048
     Dates: start: 20040101, end: 20040217
  4. ZOCOR [Suspect]
     Indication: CORONARY ARTERY DISEASE
     Route: 048
     Dates: start: 20040101, end: 20040217

REACTIONS (2)
  - BLOOD CREATINE PHOSPHOKINASE INCREASED [None]
  - BLOOD CREATININE INCREASED [None]
